FAERS Safety Report 26110628 (Version 1)
Quarter: 2025Q4

REPORT INFORMATION
  Report Type: Report from Study
  Country: EU (occurrence: EU)
  Receive Date: 20251202
  Receipt Date: 20251202
  Transmission Date: 20260118
  Serious: Yes (Hospitalization)
  Sender: ABBVIE
  Company Number: EU-ABBVIE-6570302

PATIENT
  Age: 73 Year
  Sex: Male

DRUGS (1)
  1. FOSCARBIDOPA\FOSLEVODOPA [Suspect]
     Active Substance: FOSCARBIDOPA\FOSLEVODOPA
     Indication: Parkinson^s disease
     Dosage: DAILY DOSE: 1.080 MG/DAY, CRL: 0.14ML/H, CRB: 0.26ML/H (15H), CRH: 0.3ML/H, ED: 0.3ML, LD: 0ML
     Route: 058
     Dates: start: 20250603

REACTIONS (1)
  - Septic embolus [Recovered/Resolved]

NARRATIVE: CASE EVENT DATE: 20250901
